FAERS Safety Report 14698409 (Version 2)
Quarter: 2019Q2

REPORT INFORMATION
  Report Type: Spontaneous
  Country: ES (occurrence: ES)
  Receive Date: 20180330
  Receipt Date: 20190607
  Transmission Date: 20190711
  Serious: Yes (Hospitalization, Other)
  Sender: FDA-Public Use
  Company Number: ES-SUN PHARMACEUTICAL INDUSTRIES LTD-2018RR-168665

PATIENT
  Age: 47 Year
  Sex: Female

DRUGS (23)
  1. ORFIDAL 1 MG COMPRIMIDOS, 25 COMPRIMIDOS [Suspect]
     Active Substance: LORAZEPAM
     Indication: DEPRESSION
     Dosage: 300 MG, QD ()
     Route: 065
  2. CYMBALTA [Suspect]
     Active Substance: DULOXETINE HYDROCHLORIDE
     Indication: DEPRESSION
     Dosage: ()
     Route: 065
  3. INVEGA [Suspect]
     Active Substance: PALIPERIDONE
     Indication: DEPRESSION
     Dosage: 5 MG, UNK ()
     Route: 065
  4. CYMBALTA [Suspect]
     Active Substance: DULOXETINE HYDROCHLORIDE
     Indication: DEPRESSION
     Dosage: 200 MG, QD
     Route: 065
  5. SOLIAN 100 MG COMPRIMIDOS , 60 COMPRIMIDOS [Suspect]
     Active Substance: AMISULPRIDE
     Indication: DEPRESSION
     Dosage: 5 MG, UNK ()
     Route: 065
  6. GABAPENTIN. [Suspect]
     Active Substance: GABAPENTIN
     Indication: DEPRESSION
     Dosage: 300 MG, QD
     Route: 065
  7. VANDRAL RETARD 75 MG CAPSULAS DURAS DE LIBERACION PROLONGADA, 30 CAPSU [Suspect]
     Active Substance: VENLAFAXINE HYDROCHLORIDE
     Indication: DEPRESSION
     Dosage: 10 MG, UNK
     Route: 065
  8. VANDRAL RETARD 75 MG CAPSULAS DURAS DE LIBERACION PROLONGADA, 30 CAPSU [Suspect]
     Active Substance: VENLAFAXINE HYDROCHLORIDE
     Dosage: 75 MG, UNK
     Route: 065
  9. TRYPTIZOL [Suspect]
     Active Substance: AMITRIPTYLINE HYDROCHLORIDE
     Indication: DEPRESSION
     Dosage: 75 MG, UNK
     Route: 065
  10. DEPRAX 100 MG COMPRIMIDOS RECUBIERTOS CON PELICULA EFG , 30 COMPRIMIDO [Suspect]
     Active Substance: TRAZODONE HYDROCHLORIDE
     Indication: DEPRESSION
     Dosage: 200 MG, QD ()
     Route: 065
  11. LUDIOMIL [Suspect]
     Active Substance: MAPROTILINE HYDROCHLORIDE
     Indication: DEPRESSION
     Dosage: 75 MG, QD
     Route: 065
  12. ABILIFY [Suspect]
     Active Substance: ARIPIPRAZOLE
     Indication: DEPRESSION
     Dosage: 5 MG, QD
     Route: 065
  13. ZARELIS RETARD 75 MG COMPRIMIDOS DE LIBERACION PROLONGADA , 30 COMPRIM [Suspect]
     Active Substance: VENLAFAXINE HYDROCHLORIDE
     Indication: DEPRESSION
     Dosage: 75 MG, QD
     Route: 065
  14. ZYPREXA [Suspect]
     Active Substance: OLANZAPINE
     Indication: DEPRESSION
     Dosage: 2.5 MG, UNK
     Route: 065
  15. ANAFRANIL [Suspect]
     Active Substance: CLOMIPRAMINE HYDROCHLORIDE
     Indication: DEPRESSION
     Dosage: 75 MG, QD
     Route: 065
  16. SEROQUEL [Suspect]
     Active Substance: QUETIAPINE FUMARATE
     Indication: DEPRESSION
     Dosage: 50 MG, QD
     Route: 065
  17. DEPAKINE 200MG 40 COMPRIMIDOS RECUBIERTOS [Suspect]
     Active Substance: VALPROATE SODIUM
     Indication: DEPRESSION
     Dosage: 200 MG, QD
     Route: 065
  18. SINOGAN 25 MG COMPRIMIDOS RECUBIERTOS CON PELICULA, 20 COMPRIMIDOS [Suspect]
     Active Substance: LEVOMEPROMAZINE
     Indication: DEPRESSION
     Dosage: 50 MG, QD ()
     Route: 065
  19. TRILEPTAL [Suspect]
     Active Substance: OXCARBAZEPINE
     Indication: DEPRESSION
     Dosage: 5 MG, UNK ()
     Route: 065
  20. INVEGA SUSTENNA [Suspect]
     Active Substance: PALIPERIDONE PALMITATE
     Indication: DEPRESSION
     Dosage: ()
     Route: 065
  21. ANAFRANIL [Suspect]
     Active Substance: CLOMIPRAMINE HYDROCHLORIDE
     Indication: PRODUCT USED FOR UNKNOWN INDICATION
     Dosage: 10 MG, UNK
     Route: 065
  22. ROCOZ 100 MG COMPRIMIDOS RECUBIERTOS CON PELICULA EFG, 60 COMPRIMIDOS [Suspect]
     Active Substance: QUETIAPINE FUMARATE
     Indication: DEPRESSION
     Dosage: 100 MG, UNK
     Route: 065
  23. RISPERDAL [Suspect]
     Active Substance: RISPERIDONE
     Indication: DEPRESSION
     Dosage: 2.5 MG, QD
     Route: 065

REACTIONS (12)
  - Visual impairment [Unknown]
  - Product use in unapproved indication [Unknown]
  - Psoriasis [Unknown]
  - Constipation [Unknown]
  - Conjunctivitis [Unknown]
  - Dry eye [Unknown]
  - Vision blurred [Unknown]
  - Adverse event [Unknown]
  - Intestinal obstruction [Unknown]
  - Off label use [Unknown]
  - Mental disorder [Unknown]
  - Eye irritation [Unknown]
